FAERS Safety Report 26150477 (Version 1)
Quarter: 2025Q4

REPORT INFORMATION
  Report Type: Spontaneous
  Country: US (occurrence: None)
  Receive Date: 20251210
  Receipt Date: 20251210
  Transmission Date: 20260117
  Serious: Yes (Life-Threatening, Hospitalization)
  Sender: FDA-CTU
  Company Number: None

PATIENT
  Age: 50 Year
  Sex: Female
  Weight: 68 kg

DRUGS (11)
  1. SIPONIMOD [Suspect]
     Active Substance: SIPONIMOD
     Dosage: FREQUENCY : DAILY;
     Route: 048
  2. BACLOFEN [Concomitant]
     Active Substance: BACLOFEN
  3. INSULIN ASPART [Concomitant]
     Active Substance: INSULIN ASPART
  4. INSULIN GLARGINE [Concomitant]
     Active Substance: INSULIN GLARGINE
  5. LACOSAMIDE [Concomitant]
     Active Substance: LACOSAMIDE
  6. LEVOTHYROXINE [Concomitant]
     Active Substance: LEVOTHYROXINE
  7. OXYBUTYNIN [Concomitant]
     Active Substance: OXYBUTYNIN
  8. TEMAZEPAM [Concomitant]
     Active Substance: TEMAZEPAM
  9. ROSUVASTATIN [Concomitant]
     Active Substance: ROSUVASTATIN
  10. SENNOSIDES [Concomitant]
     Active Substance: SENNOSIDES
  11. Tube feeds [Concomitant]

REACTIONS (1)
  - Fungal infection [None]

NARRATIVE: CASE EVENT DATE: 20251203
